FAERS Safety Report 10357788 (Version 2)
Quarter: 2014Q4

REPORT INFORMATION
  Report Type: Spontaneous
  Country: JP (occurrence: JP)
  Receive Date: 20140801
  Receipt Date: 20141022
  Transmission Date: 20150528
  Serious: Yes (Death)
  Sender: FDA-Public Use
  Company Number: PHHY2012JP133592

PATIENT
  Sex: Female

DRUGS (1)
  1. EXJADE [Suspect]
     Active Substance: DEFERASIROX
     Indication: MYELODYSPLASTIC SYNDROME
     Dosage: 500 MG, QD
     Route: 048
     Dates: start: 20120401, end: 20120407

REACTIONS (2)
  - Myelodysplastic syndrome [Fatal]
  - Oncologic complication [Fatal]

NARRATIVE: CASE EVENT DATE: 201204
